FAERS Safety Report 5315527-8 (Version None)
Quarter: 2007Q2

REPORT INFORMATION
  Report Type: 
  Country: None (occurrence: None)
  Receive Date: 20070503
  Receipt Date: 20070426
  Transmission Date: 20071010
  Serious: Yes (Other)
  Sender: FDA-Public Use
  Company Number: PL-AVENTIS-200713765GDDC

PATIENT
  Age: 35 Year
  Sex: Female

DRUGS (9)
  1. ARAVA [Suspect]
     Indication: RHEUMATOID ARTHRITIS
     Route: 048
     Dates: start: 20061201
  2. METYPRED [Concomitant]
     Indication: RHEUMATOID ARTHRITIS
     Route: 048
  3. OLFEN-75 [Concomitant]
     Indication: RHEUMATOID ARTHRITIS
     Route: 048
  4. DEPAKENE [Concomitant]
     Indication: EPILEPSY
     Route: 048
     Dates: start: 20020101
  5. GABITRIL [Concomitant]
     Indication: EPILEPSY
     Route: 048
     Dates: start: 20020101
  6. ORGAMETRIL [Concomitant]
     Dosage: DOSE: UNK
     Route: 048
  7. AUGMENTIN                          /00756801/ [Concomitant]
     Dosage: DOSE: UNK
     Route: 048
  8. CLIMICIN [Concomitant]
     Dosage: DOSE: UNK
     Route: 048
  9. DALACIN T [Concomitant]
     Dosage: DOSE: UNK
     Route: 048

REACTIONS (5)
  - ABDOMINAL PAIN [None]
  - ALANINE AMINOTRANSFERASE INCREASED [None]
  - ALOPECIA [None]
  - FLATULENCE [None]
  - HYPERTENSION [None]
